FAERS Safety Report 6554143-7 (Version None)
Quarter: 2010Q1

REPORT INFORMATION
  Report Type: 
  Country: None (occurrence: None)
  Receive Date: 20100125
  Receipt Date: 20100125
  Transmission Date: 20100710
  Serious: Yes (Disabling)
  Sender: FDA-Public Use
  Company Number: None

PATIENT
  Sex: Female
  Weight: 86.1834 kg

DRUGS (1)
  1. ZICAM INTENSE MATRIXX INITIATIVES [Suspect]
     Indication: NASOPHARYNGITIS
     Dosage: ONE SPAY 1-2 TIMES A DAY NASAL
     Route: 045
     Dates: start: 20091220, end: 20100120

REACTIONS (1)
  - ANOSMIA [None]
